FAERS Safety Report 8887196 (Version 1)
Quarter: 2012Q4

REPORT INFORMATION
  Report Type: 
  Country: US (occurrence: US)
  Receive Date: 20121105
  Receipt Date: 20121105
  Transmission Date: 20130627
  Serious: Yes (Hospitalization, Other)
  Sender: FDA-Public Use
  Company Number: US-GILEAD-2012-0063999

PATIENT
  Sex: Female

DRUGS (3)
  1. LETAIRIS [Suspect]
     Indication: COR PULMONALE CHRONIC
     Dosage: 5 mg, QD
     Route: 048
     Dates: start: 20120427
  2. TYVASO [Concomitant]
     Dates: start: 20100317
  3. REVATIO [Concomitant]
     Dosage: UNK
     Dates: start: 20100318

REACTIONS (8)
  - Blood potassium decreased [Unknown]
  - Presyncope [Unknown]
  - Pyrexia [Unknown]
  - Systemic lupus erythematosus [Unknown]
  - Palpitations [Unknown]
  - Hypersomnia [Unknown]
  - Headache [Unknown]
  - Asthenia [Unknown]
